FAERS Safety Report 14597790 (Version 1)
Quarter: 2018Q1

REPORT INFORMATION
  Report Type: Report from Study
  Country: US (occurrence: US)
  Receive Date: 20180305
  Receipt Date: 20180305
  Transmission Date: 20180509
  Serious: Yes (Hospitalization, Other)
  Sender: FDA-Public Use
  Company Number: US-BIOGEN-2018BI00524239

PATIENT
  Age: 44 Year
  Sex: Female

DRUGS (1)
  1. TYSABRI [Suspect]
     Active Substance: NATALIZUMAB
     Indication: MULTIPLE SCLEROSIS
     Route: 065
     Dates: start: 20130219, end: 20171031

REACTIONS (4)
  - Deep vein thrombosis [Unknown]
  - Arthroscopy [Recovered/Resolved]
  - Knee arthroplasty [Recovered/Resolved]
  - May-Thurner syndrome [Unknown]

NARRATIVE: CASE EVENT DATE: 201302
